FAERS Safety Report 18329324 (Version 1)
Quarter: 2020Q3

REPORT INFORMATION
  Report Type: Other
  Country: CA (occurrence: CA)
  Receive Date: 20200930
  Receipt Date: 20200930
  Transmission Date: 20201103
  Serious: Yes (Other)
  Sender: FDA-Public Use
  Company Number: CA-CELLTRION INC.-2020CA027121

PATIENT

DRUGS (8)
  1. TRANDATE [Concomitant]
     Active Substance: LABETALOL HYDROCHLORIDE
  2. NIFEDIPINE. [Concomitant]
     Active Substance: NIFEDIPINE
  3. POTASSIUM [Concomitant]
     Active Substance: POTASSIUM
  4. RENAGEL [Concomitant]
     Active Substance: SEVELAMER HYDROCHLORIDE
  5. ARANESP [Concomitant]
     Active Substance: DARBEPOETIN ALFA
  6. RITUXIMAB (UNKNOWN) [Suspect]
     Active Substance: RITUXIMAB
     Indication: ANTI-NEUTROPHIL CYTOPLASMIC ANTIBODY POSITIVE VASCULITIS
     Dosage: 800.0 MILLIGRAM, 1 EVERY 1 WEEK
     Route: 042
  7. CALCIUM [Concomitant]
     Active Substance: CALCIUM
  8. PANTOPRAZOLE [Concomitant]
     Active Substance: PANTOPRAZOLE

REACTIONS (4)
  - Renal disorder [Unknown]
  - Off label use [Unknown]
  - Intentional product use issue [Unknown]
  - Eye disorder [Unknown]
